FAERS Safety Report 13018515 (Version 1)
Quarter: 2016Q4

REPORT INFORMATION
  Report Type: Spontaneous
  Country: US (occurrence: US)
  Receive Date: 20161212
  Receipt Date: 20161212
  Transmission Date: 20170207
  Serious: Yes (Death)
  Sender: FDA-Public Use
  Company Number: US-INSYS THERAPEUTICS, INC-INS201611-000755

PATIENT
  Age: 64 Year
  Sex: Male

DRUGS (4)
  1. BUTRANS [Concomitant]
     Active Substance: BUPRENORPHINE
     Dates: start: 201604
  2. SUBSYS [Suspect]
     Active Substance: FENTANYL
     Indication: BREAKTHROUGH PAIN
     Route: 060
  3. VOLTAREN [Concomitant]
     Active Substance: DICLOFENAC SODIUM
  4. LIDODERM PATCHES 5% [Concomitant]

REACTIONS (1)
  - Death [Fatal]

NARRATIVE: CASE EVENT DATE: 20160616
